FAERS Safety Report 7672005-9 (Version None)
Quarter: 2011Q3

REPORT INFORMATION
  Report Type: 
  Country: None (occurrence: None)
  Receive Date: 20110809
  Receipt Date: 20110729
  Transmission Date: 20111222
  Serious: Yes (Other)
  Sender: FDA-Public Use
  Company Number: JP-JNJFOC-20110200650

PATIENT
  Age: 36 Year
  Sex: Male
  Weight: 96 kg

DRUGS (14)
  1. FOLIC ACID [Concomitant]
     Indication: PROPHYLAXIS
     Route: 048
  2. LOXONIN [Concomitant]
     Indication: PSORIATIC ARTHROPATHY
     Route: 048
  3. ISONIAZID [Suspect]
     Indication: ANTIBIOTIC PROPHYLAXIS
     Route: 065
     Dates: start: 20100614, end: 20100804
  4. FAMOTIDINE [Concomitant]
     Route: 048
  5. TALION [Concomitant]
     Route: 048
  6. REMICADE [Suspect]
     Route: 042
     Dates: start: 20100720
  7. OXAROL [Concomitant]
     Indication: PSORIATIC ARTHROPATHY
  8. REMICADE [Suspect]
     Indication: PSORIATIC ARTHROPATHY
     Route: 042
     Dates: start: 20100706
  9. ALLOPURINOL [Concomitant]
     Indication: HYPERURICAEMIA
     Route: 048
  10. METHOTREXATE [Concomitant]
     Indication: PSORIATIC ARTHROPATHY
     Route: 048
  11. LANSOPRAZOLE [Concomitant]
     Indication: PROPHYLAXIS
     Route: 048
  12. MUCOSTA [Concomitant]
     Indication: PROPHYLAXIS
     Route: 048
  13. PREDNISONE [Concomitant]
     Indication: PSORIATIC ARTHROPATHY
     Route: 048
  14. CLOBETASOL PROPIONATE [Concomitant]
     Indication: PSORIATIC ARTHROPATHY

REACTIONS (1)
  - LIVER DISORDER [None]
